FAERS Safety Report 19139978 (Version 2)
Quarter: 2023Q4

REPORT INFORMATION
  Report Type: Spontaneous
  Country: PL (occurrence: None)
  Receive Date: 20210415
  Receipt Date: 20231002
  Transmission Date: 20240109
  Serious: Yes (Hospitalization, Other)
  Sender: FDA-Public Use
  Company Number: 2021A281687

PATIENT
  Age: 46 Year
  Sex: Male

DRUGS (9)
  1. ROSUVASTATIN [Suspect]
     Active Substance: ROSUVASTATIN
     Indication: Cardiac failure chronic
     Dosage: 1.0DF UNKNOWN
     Route: 065
  2. ATORVASTATIN [Suspect]
     Active Substance: ATORVASTATIN
     Indication: Cardiac failure chronic
     Dosage: 1.0DF UNKNOWN
     Route: 065
  3. TORSEMIDE [Suspect]
     Active Substance: TORSEMIDE
     Indication: Cardiac failure chronic
     Dosage: 20.0MG UNKNOWN
     Route: 065
  4. COREG [Suspect]
     Active Substance: CARVEDILOL
     Indication: Cardiac failure chronic
     Dosage: 2.0DF UNKNOWN
     Route: 065
  5. ASPIRIN [Suspect]
     Active Substance: ASPIRIN
     Indication: Cardiac failure chronic
     Dosage: 1.0DF UNKNOWN
     Route: 065
  6. RAMIPRIL [Suspect]
     Active Substance: RAMIPRIL
     Indication: Cardiac failure chronic
     Dosage: 1.0DF UNKNOWN
     Route: 065
  7. EPLERENONE [Suspect]
     Active Substance: EPLERENONE
     Indication: Cardiac failure chronic
     Dosage: 1.0DF UNKNOWN
     Route: 065
  8. ENTRESTO [Suspect]
     Active Substance: SACUBITRIL\VALSARTAN
     Indication: Cardiac failure chronic
     Dosage: 2 DF, UNKNOWN (OF 24/26MG)2.0DF UNKNOWN
     Route: 065
     Dates: start: 20191128
  9. IVABRADINE [Suspect]
     Active Substance: IVABRADINE
     Indication: Cardiac failure chronic
     Dosage: 1.0DF UNKNOWN
     Route: 065

REACTIONS (6)
  - Cardiac failure [Recovered/Resolved]
  - Bradycardia [Unknown]
  - Feeling abnormal [Unknown]
  - Hypotension [Unknown]
  - Electrocardiogram abnormal [Unknown]
  - Overdose [Unknown]
